FAERS Safety Report 7604214-9 (Version None)
Quarter: 2011Q3

REPORT INFORMATION
  Report Type: 
  Country: None (occurrence: None)
  Receive Date: 20110712
  Receipt Date: 20110704
  Transmission Date: 20111222
  Serious: Yes (Hospitalization)
  Sender: FDA-Public Use
  Company Number: IT-MERCK-0910ITA00003

PATIENT
  Age: 73 Year
  Sex: Female

DRUGS (3)
  1. VIOXX [Suspect]
     Indication: ARTHRALGIA
     Route: 048
     Dates: start: 20031008, end: 20031017
  2. VIOXX [Suspect]
     Route: 048
     Dates: start: 20031201, end: 20040623
  3. VIOXX [Suspect]
     Route: 048
     Dates: start: 20031119, end: 20031203

REACTIONS (10)
  - VENTRICULAR DYSKINESIA [None]
  - ANXIETY [None]
  - INSOMNIA [None]
  - ANTISOCIAL BEHAVIOUR [None]
  - TACHYCARDIA [None]
  - ACUTE MYOCARDIAL INFARCTION [None]
  - INTRACARDIAC THROMBUS [None]
  - PALPITATIONS [None]
  - DYSPNOEA [None]
  - FATIGUE [None]
